FAERS Safety Report 11119389 (Version 1)
Quarter: 2015Q2

REPORT INFORMATION
  Report Type: Spontaneous
  Country: JP (occurrence: JP)
  Receive Date: 20150518
  Receipt Date: 20150518
  Transmission Date: 20150821
  Serious: Yes (Hospitalization)
  Sender: FDA-Public Use
  Company Number: JP-EISAI MEDICAL RESEARCH-EC-2014-002155

PATIENT
  Age: 42 Year
  Sex: Male

DRUGS (7)
  1. EXCEGRAN [Suspect]
     Active Substance: ZONISAMIDE
     Route: 048
     Dates: start: 20120817, end: 20120817
  2. EXCEGRAN [Suspect]
     Active Substance: ZONISAMIDE
     Route: 048
     Dates: start: 20120818, end: 20120909
  3. EXCEGRAN [Suspect]
     Active Substance: ZONISAMIDE
     Route: 048
     Dates: start: 20120910, end: 20121217
  4. MAGLAX [Concomitant]
     Active Substance: MAGNESIUM OXIDE
     Indication: CONSTIPATION
     Route: 048
     Dates: start: 20121112, end: 20140331
  5. EXCEGRAN [Suspect]
     Active Substance: ZONISAMIDE
     Indication: EPILEPSY
     Route: 048
     Dates: start: 20120804, end: 20120816
  6. MOBIC [Concomitant]
     Active Substance: MELOXICAM
     Indication: PAIN
     Route: 048
     Dates: start: 20121029, end: 20121210
  7. GABAPEN [Concomitant]
     Active Substance: GABAPENTIN
     Indication: EPILEPSY
     Route: 048
     Dates: start: 20121112, end: 20121210

REACTIONS (1)
  - Drug reaction with eosinophilia and systemic symptoms [Recovered/Resolved]

NARRATIVE: CASE EVENT DATE: 20121205
